FAERS Safety Report 14839187 (Version 1)
Quarter: 2018Q2

REPORT INFORMATION
  Report Type: Report from Study
  Country: US (occurrence: US)
  Receive Date: 20180502
  Receipt Date: 20180502
  Transmission Date: 20180711
  Serious: Yes (Hospitalization)
  Sender: FDA-Public Use
  Company Number: US-GILEAD-2018-0336358

PATIENT
  Age: 34 Year
  Sex: Female

DRUGS (15)
  1. AZTREONAM LYSINE [Suspect]
     Active Substance: AZTREONAM LYSINE
     Indication: CYSTIC FIBROSIS
     Dosage: 75 MG, TID 28 DS ON AND 28 DS OFF
     Route: 055
     Dates: start: 20171219
  2. PRENATAL                           /00231801/ [Concomitant]
     Active Substance: VITAMINS
  3. CIPROFLOXACIN. [Concomitant]
     Active Substance: CIPROFLOXACIN
  4. AQUADEKS                           /07679501/ [Concomitant]
     Active Substance: MINERALS\VITAMINS
  5. SMZ-TMP [Concomitant]
     Active Substance: SULFAMETHOXAZOLE\TRIMETHOPRIM
  6. CREON [Concomitant]
     Active Substance: PANCRELIPASE AMYLASE\PANCRELIPASE LIPASE\PANCRELIPASE PROTEASE
  7. IVACAFTOR [Concomitant]
     Active Substance: IVACAFTOR
  8. SLOW-FE [Concomitant]
     Active Substance: FERROUS SULFATE
  9. PREDNISONE. [Concomitant]
     Active Substance: PREDNISONE
  10. LINEZOLID. [Concomitant]
     Active Substance: LINEZOLID
  11. OMEPRAZOLE. [Concomitant]
     Active Substance: OMEPRAZOLE
  12. PROAIR HFA [Concomitant]
     Active Substance: ALBUTEROL SULFATE
  13. ALBUTEROL                          /00139501/ [Concomitant]
     Active Substance: ALBUTEROL
  14. FLUCONAZOLE. [Concomitant]
     Active Substance: FLUCONAZOLE
  15. TEZACAFTOR [Concomitant]
     Active Substance: TEZACAFTOR
     Dosage: 100/150 MG PO QAM AND QPM
     Dates: start: 20180403

REACTIONS (1)
  - Haemoptysis [Not Recovered/Not Resolved]

NARRATIVE: CASE EVENT DATE: 201804
